FAERS Safety Report 15703100 (Version 1)
Quarter: 2018Q4

REPORT INFORMATION
  Report Type: Spontaneous
  Country: US (occurrence: US)
  Receive Date: 20181127
  Receipt Date: 20181127
  Transmission Date: 20190205
  Serious: Yes (Hospitalization)
  Sender: FDA-Public Use
  Company Number: None

PATIENT
  Age: 72 Year
  Sex: Female

DRUGS (1)
  1. DONEPEZIL. [Suspect]
     Active Substance: DONEPEZIL
     Indication: DEMENTIA
     Route: 048
     Dates: start: 20181119, end: 20181120

REACTIONS (5)
  - Hyperhidrosis [None]
  - Tremor [None]
  - Dizziness [None]
  - Feeling of body temperature change [None]
  - Vomiting [None]

NARRATIVE: CASE EVENT DATE: 20181121
